FAERS Safety Report 17356733 (Version 1)
Quarter: 2020Q1

REPORT INFORMATION
  Report Type: Spontaneous
  Country: US (occurrence: US)
  Receive Date: 20200131
  Receipt Date: 20200131
  Transmission Date: 20200409
  Serious: No
  Sender: FDA-Public Use
  Company Number: US-ANTARES PHARMA, INC.-2019-SPO-SU-0585

PATIENT
  Sex: Female

DRUGS (3)
  1. ERENUMAB [Concomitant]
     Active Substance: ERENUMAB
     Indication: MIGRAINE
  2. SUMATRIPTAN. [Suspect]
     Active Substance: SUMATRIPTAN
     Dosage: 4 MG, PRN
     Route: 058
     Dates: start: 201906
  3. ALMOTRIPTAN. [Concomitant]
     Active Substance: ALMOTRIPTAN
     Indication: MIGRAINE

REACTIONS (2)
  - Product dose omission [Unknown]
  - Injection site pain [Unknown]
